FAERS Safety Report 21521017 (Version 2)
Quarter: 2022Q4

REPORT INFORMATION
  Report Type: Other
  Country: US (occurrence: US)
  Receive Date: 20221028
  Receipt Date: 20221117
  Transmission Date: 20230112
  Serious: Yes (Death, Hospitalization)
  Sender: FDA-Public Use
  Company Number: US-ALVOGEN-2022088549

PATIENT
  Age: 67 Year
  Sex: Male

DRUGS (3)
  1. METHOTREXATE [Suspect]
     Active Substance: METHOTREXATE
     Indication: Product used for unknown indication
     Dosage: AT 10 MG WEEKLY WITHOUT FOLIC ACID SUPPLEMENTATION.
  2. APREMILAST [Concomitant]
     Active Substance: APREMILAST
     Indication: Psoriasis
     Dosage: FOR APPROXIMATELY 4 MONTHS.
  3. ASPIRIN [Concomitant]
     Active Substance: ASPIRIN
     Indication: Product used for unknown indication

REACTIONS (18)
  - Toxicity to various agents [Fatal]
  - Multiple organ dysfunction syndrome [Fatal]
  - Mental status changes [Unknown]
  - Asthenia [Unknown]
  - Mucosal inflammation [Unknown]
  - Psoriasis [Unknown]
  - Pulmonary congestion [Unknown]
  - Pulmonary oedema [Unknown]
  - Diffuse alveolar damage [Fatal]
  - Hepatic steatosis [Fatal]
  - Cholestatic liver injury [Fatal]
  - Hypertransaminasaemia [Unknown]
  - Respiratory failure [Fatal]
  - Abdominal pain [Unknown]
  - Lethargy [Unknown]
  - Neutropenia [Unknown]
  - Pancytopenia [Unknown]
  - Diarrhoea [Unknown]
